FAERS Safety Report 13286492 (Version 1)
Quarter: 2017Q1

REPORT INFORMATION
  Report Type: Spontaneous
  Country: CN (occurrence: CN)
  Receive Date: 20170301
  Receipt Date: 20170301
  Transmission Date: 20170428
  Serious: Yes (Other)
  Sender: FDA-Public Use
  Company Number: CN-GILEAD-2017-0260074

PATIENT
  Age: 23 Year
  Sex: Female

DRUGS (1)
  1. VIREAD [Suspect]
     Active Substance: TENOFOVIR DISOPROXIL FUMARATE
     Indication: HEPATITIS B
     Dosage: 300 MG, QD
     Route: 048
     Dates: start: 201602

REACTIONS (3)
  - Maternal exposure during pregnancy [Unknown]
  - Foetal death [Unknown]
  - Abortion threatened [Unknown]

NARRATIVE: CASE EVENT DATE: 20170219
